FAERS Safety Report 19569897 (Version 2)
Quarter: 2021Q4

REPORT INFORMATION
  Report Type: Spontaneous
  Country: US (occurrence: US)
  Receive Date: 20210715
  Receipt Date: 20211025
  Transmission Date: 20220303
  Serious: No
  Sender: FDA-Public Use
  Company Number: US-PFIZER INC-2021829800

PATIENT
  Age: 49 Year
  Sex: Female

DRUGS (3)
  1. TOZINAMERAN [Suspect]
     Active Substance: TOZINAMERAN
     Indication: COVID-19 immunisation
     Dosage: DOSE 2, SINGLE
  2. TOZINAMERAN [Suspect]
     Active Substance: TOZINAMERAN
     Dosage: DOSE 1, SINGLE
  3. XELJANZ XR [Suspect]
     Active Substance: TOFACITINIB CITRATE
     Indication: Rheumatoid arthritis
     Dosage: 11 MG, DAILY
     Route: 048
     Dates: start: 202101

REACTIONS (1)
  - Illness [Unknown]
